FAERS Safety Report 23420081 (Version 1)
Quarter: 2024Q1

REPORT INFORMATION
  Report Type: Spontaneous
  Country: GB (occurrence: GB)
  Receive Date: 20240119
  Receipt Date: 20240119
  Transmission Date: 20240409
  Serious: Yes (Death, Congenital Anomaly)
  Sender: FDA-Public Use
  Company Number: GB-HETERO-HET2020GB00753

PATIENT

DRUGS (3)
  1. NEVIRAPINE [Suspect]
     Active Substance: NEVIRAPINE
     Indication: HIV infection
     Route: 064
     Dates: start: 20200122
  2. NORVIR [Suspect]
     Active Substance: RITONAVIR
     Indication: HIV infection
     Route: 064
     Dates: start: 20200122
  3. DIDANOSINE [Suspect]
     Active Substance: DIDANOSINE
     Indication: HIV infection
     Route: 064
     Dates: start: 20040122

REACTIONS (3)
  - Pulmonary hypoplasia [Fatal]
  - Congenital central nervous system anomaly [Fatal]
  - Foetal exposure during pregnancy [Fatal]
